FAERS Safety Report 10419082 (Version 2)
Quarter: 2015Q2

REPORT INFORMATION
  Report Type: Spontaneous
  Country: US (occurrence: US)
  Receive Date: 20140829
  Receipt Date: 20150626
  Transmission Date: 20150821
  Serious: Yes (Death, Hospitalization, Other)
  Sender: FDA-Public Use
  Company Number: US-UCBSA-2014009605

PATIENT
  Age: 67 Year
  Sex: Female
  Weight: 74 kg

DRUGS (31)
  1. ACYCLOVIR. [Concomitant]
     Active Substance: ACYCLOVIR
     Dosage: 750 MG, UNK
     Route: 042
  2. METHOTREXATE [Concomitant]
     Active Substance: METHOTREXATE
     Dosage: 25 MG, WEEKLY (QW)
     Route: 048
  3. PRAMIPEXOLE [Concomitant]
     Active Substance: PRAMIPEXOLE
     Dosage: 0.125 MG, ONCE DAILY (QD)
     Route: 048
  4. ACETAMINOPHEN W/HYDROCODONE [Concomitant]
     Active Substance: ACETAMINOPHEN\HYDROCODONE
  5. NABUMETONE. [Concomitant]
     Active Substance: NABUMETONE
     Dosage: UNK
     Dates: start: 20140120
  6. RELAFEN [Concomitant]
     Active Substance: NABUMETONE
     Dosage: 750 MG, 2X/DAY (BID)
     Route: 048
  7. NORCO [Concomitant]
     Active Substance: ACETAMINOPHEN\HYDROCODONE BITARTRATE
     Indication: PAIN
     Dosage: 10 / 325 MG TWO TABLETS
     Route: 048
  8. MIRAPEX [Concomitant]
     Active Substance: PRAMIPEXOLE DIHYDROCHLORIDE
     Dosage: 0.125 MG, ONCE DAILY (QD)
     Route: 048
  9. RESTORIL [Concomitant]
     Active Substance: TEMAZEPAM
     Dosage: 30 MG, ONCE DAILY (QD)
     Route: 048
  10. FOLIC ACID. [Concomitant]
     Active Substance: FOLIC ACID
     Dosage: 2 MG, ONCE DAILY (QD)
     Route: 048
  11. ROFLUMILAST [Concomitant]
     Active Substance: ROFLUMILAST
     Dosage: UNK, ONCE DAILY (QD)
     Route: 048
  12. DUONEB [Concomitant]
     Active Substance: ALBUTEROL SULFATE\IPRATROPIUM BROMIDE
  13. LIDODERM [Concomitant]
     Active Substance: LIDOCAINE
  14. BACLOFEN. [Concomitant]
     Active Substance: BACLOFEN
     Dosage: 20 MG, 2X/DAY (BID)
     Dates: start: 20140520
  15. TOFACITINIB CITRATE [Suspect]
     Active Substance: TOFACITINIB CITRATE
     Indication: RHEUMATOID ARTHRITIS
     Dosage: 5 MG, 2X/DAY (BID)
     Route: 048
     Dates: start: 20140514, end: 20140606
  16. ALPRAZOLAM. [Concomitant]
     Active Substance: ALPRAZOLAM
     Dosage: 0.5 MG, UNK
     Route: 048
  17. DALIRESP [Concomitant]
     Active Substance: ROFLUMILAST
     Dosage: 0.5 MG, UNK
     Route: 048
  18. HYDROXYCHLOROQUINE SULFATE. [Concomitant]
     Active Substance: HYDROXYCHLOROQUINE SULFATE
     Dosage: UNK, 2X/DAY (BID)
     Dates: start: 20140224
  19. KEPPRA [Suspect]
     Active Substance: LEVETIRACETAM
     Dosage: 1000 MG, 2X/DAY (BID)
     Route: 042
     Dates: start: 201406, end: 2014
  20. IPRATROPIUM [Concomitant]
     Active Substance: IPRATROPIUM
     Dosage: 500 ?G, UNK
  21. PLAQUENIL [Concomitant]
     Active Substance: HYDROXYCHLOROQUINE SULFATE
     Dosage: 200 MG, UNK
     Route: 048
  22. MIST [Concomitant]
  23. VISTARIL [Concomitant]
     Active Substance: HYDROXYZINE PAMOATE
     Dosage: UNK
     Dates: start: 20140509
  24. KEPPRA [Suspect]
     Active Substance: LEVETIRACETAM
     Dosage: 500 MG, 2X/DAY (BID)
     Route: 048
     Dates: start: 2014
  25. VENTOLIN [Concomitant]
     Active Substance: ALBUTEROL SULFATE
  26. SULFASALAZINE. [Concomitant]
     Active Substance: SULFASALAZINE
     Dosage: 0.5 MG, 2X/DAY (BID)
     Route: 048
  27. TRAMADOL [Concomitant]
     Active Substance: TRAMADOL
     Indication: PAIN
     Dosage: 25 MG, UNK
     Route: 048
  28. CYMBALTA [Concomitant]
     Active Substance: DULOXETINE HYDROCHLORIDE
     Dosage: 60 MG, UNK
     Route: 048
  29. ALBUTEROL. [Concomitant]
     Active Substance: ALBUTEROL
     Dosage: 90 ?G, UNK
  30. PREDNISONE. [Concomitant]
     Active Substance: PREDNISONE
     Dosage: 40 MG, ONCE DAILY (QD)
     Route: 048
  31. LEVAQUIN [Concomitant]
     Active Substance: LEVOFLOXACIN
     Indication: PNEUMONIA

REACTIONS (10)
  - Dysphagia [Fatal]
  - Pneumonia aspiration [Fatal]
  - Chronic obstructive pulmonary disease [Fatal]
  - Meningoencephalitis herpetic [Fatal]
  - Sepsis [Fatal]
  - Ischaemic hepatitis [Fatal]
  - Clostridium difficile colitis [Fatal]
  - Colitis ulcerative [Fatal]
  - Cardiac arrest [Fatal]
  - Anaemia [Fatal]

NARRATIVE: CASE EVENT DATE: 2014
